FAERS Safety Report 9657705 (Version 2)
Quarter: 2013Q4

REPORT INFORMATION
  Report Type: Spontaneous
  Country: US (occurrence: US)
  Receive Date: 20131030
  Receipt Date: 20131030
  Transmission Date: 20140711
  Serious: Yes (Hospitalization)
  Sender: FDA-Public Use
  Company Number: US-BAXTER-2013BAX041491

PATIENT
  Age: 75 Year
  Sex: Male

DRUGS (5)
  1. DIANEAL LOW CALCIUM [Suspect]
     Indication: RENAL FAILURE CHRONIC
     Route: 033
     Dates: start: 2012, end: 201310
  2. DIANEAL LOW CALCIUM [Suspect]
     Route: 033
     Dates: start: 2012, end: 201310
  3. DIANEAL LOW CALCIUM [Suspect]
     Indication: RENAL FAILURE CHRONIC
     Route: 033
     Dates: start: 2012, end: 201310
  4. DIANEAL LOW CALCIUM [Suspect]
     Route: 033
     Dates: start: 2012, end: 201310
  5. INSULIN [Suspect]
     Indication: DIABETES MELLITUS

REACTIONS (3)
  - Convulsion [Unknown]
  - Blood glucose decreased [Unknown]
  - Hypertension [Unknown]
